FAERS Safety Report 17451135 (Version 1)
Quarter: 2020Q1

REPORT INFORMATION
  Report Type: Report from Study
  Country: GB (occurrence: GB)
  Receive Date: 20200224
  Receipt Date: 20200224
  Transmission Date: 20200409
  Serious: Yes (Hospitalization)
  Sender: FDA-Public Use
  Company Number: NVSC2020GB046089

PATIENT
  Age: 70 Year
  Sex: Female

DRUGS (1)
  1. SANDOSTATIN LAR DEPOT [Suspect]
     Active Substance: OCTREOTIDE ACETATE
     Indication: NEUROENDOCRINE TUMOUR
     Dosage: 30 MG (EVERY THREE WEEKS)
     Route: 030
     Dates: start: 2012

REACTIONS (3)
  - Chronic obstructive pulmonary disease [Unknown]
  - Pneumonia [Unknown]
  - Product dose omission [Unknown]

NARRATIVE: CASE EVENT DATE: 20200131
